FAERS Safety Report 13448471 (Version 2)
Quarter: 2017Q2

REPORT INFORMATION
  Report Type: Spontaneous
  Country: IT (occurrence: IT)
  Receive Date: 20170417
  Receipt Date: 20170501
  Transmission Date: 20170830
  Serious: Yes (Other)
  Sender: FDA-Public Use
  Company Number: IT-JNJFOC-20170415127

PATIENT
  Age: 42 Year
  Sex: Female

DRUGS (3)
  1. NICETILE [Suspect]
     Active Substance: ACETYLCARNITINE HYDROCHLORIDE
     Indication: INTERVERTEBRAL DISC DISORDER
     Route: 065
  2. MEDROL [Suspect]
     Active Substance: METHYLPREDNISOLONE
     Indication: INTERVERTEBRAL DISC DISORDER
     Route: 065
  3. TRAMADOL/PARACETAMOL [Suspect]
     Active Substance: ACETAMINOPHEN\TRAMADOL
     Indication: INTERVERTEBRAL DISC DISORDER
     Route: 048
     Dates: start: 20170404, end: 20170404

REACTIONS (7)
  - Nausea [Unknown]
  - Confusional state [Unknown]
  - Asthenia [Unknown]
  - Abdominal pain upper [Unknown]
  - Drug ineffective [Unknown]
  - Vertigo [Unknown]
  - Drug intolerance [Unknown]

NARRATIVE: CASE EVENT DATE: 20170404
